FAERS Safety Report 10375980 (Version 1)
Quarter: 2014Q1

REPORT INFORMATION
  Report Type: Spontaneous
  Country: US (occurrence: None)
  Receive Date: 20140306
  Receipt Date: 20140306
  Transmission Date: 20141002
  Serious: Yes (Hospitalization)
  Sender: FDA-Public Use
  Company Number: 163-21880-13122085

PATIENT
  Age: 70 Year
  Sex: Male
  Weight: 102.06 kg

DRUGS (9)
  1. REVLIMID (LENALIDOMIDE)  ( CAPSULES) [Suspect]
     Indication: PLASMA CELL MYELOMA
     Dosage: 25 MG, 14 IN 21 D, PO
     Route: 048
     Dates: start: 20131119, end: 20131202
  2. ZOCOR (SIMVASTATIN) [Concomitant]
  3. LOTREL (LOTREL) [Concomitant]
  4. IMIPRAMINE(IMIPRAMINE) [Concomitant]
  5. LOPRESSOR(METOPROLOL TARTRATE) [Concomitant]
  6. VELCADE(BORTEZOMIB) [Concomitant]
  7. VALTREX(VALACICLOVIR HYDROCHLORIDE) [Concomitant]
  8. ALLOPURINOL(ALLOPURINOL) [Concomitant]
  9. OXAL(ALBENDAMEBA) [Concomitant]

REACTIONS (1)
  - Atrial fibrillation [None]
